FAERS Safety Report 9045580 (Version 1)
Quarter: 2013Q1

REPORT INFORMATION
  Report Type: Report from Study
  Country: US (occurrence: US)
  Receive Date: 20130131
  Receipt Date: 20130131
  Transmission Date: 20140127
  Serious: No
  Sender: FDA-Public Use
  Company Number: US-ABBOTT-12P-163-1010118-00

PATIENT
  Age: 54 Year
  Sex: Male

DRUGS (7)
  1. HUMIRA [Suspect]
     Indication: RHEUMATOID ARTHRITIS
     Route: 058
     Dates: start: 20121113
  2. METOPROLOL TARTRATE [Concomitant]
     Indication: BLOOD PRESSURE
     Dosage: 100MG DAILY
  3. IBUPROFEN [Concomitant]
     Indication: HEADACHE
  4. IBUPROFEN [Concomitant]
     Indication: PAIN
  5. SPIRIVA [Concomitant]
     Indication: CHRONIC OBSTRUCTIVE PULMONARY DISEASE
     Dosage: 1 PUFF DAILY
  6. OMEPRAZOLE [Concomitant]
     Indication: DYSPEPSIA
     Dosage: 40MG DAILY AS NEEDED
  7. PROAIR [Concomitant]
     Indication: CHRONIC OBSTRUCTIVE PULMONARY DISEASE
     Dosage: 2 PUFFS DAILY AS NEEDED

REACTIONS (2)
  - Pruritus [Recovering/Resolving]
  - Nasopharyngitis [Unknown]
